FAERS Safety Report 9353848 (Version 1)
Quarter: 2013Q2

REPORT INFORMATION
  Report Type: Spontaneous
  Country: DE (occurrence: DE)
  Receive Date: 20130618
  Receipt Date: 20130618
  Transmission Date: 20140414
  Serious: Yes (Other)
  Sender: FDA-Public Use
  Company Number: DE-TEVA-410730GER

PATIENT
  Sex: Female
  Weight: 91 kg

DRUGS (4)
  1. FLUOXETIN [Suspect]
     Indication: DEPRESSION
     Dosage: 80 MILLIGRAM DAILY;
     Route: 048
     Dates: start: 20071203, end: 20080122
  2. METHYLPHENIDAT [Suspect]
     Indication: DEPRESSION
     Dosage: 40 MILLIGRAM DAILY;
     Route: 048
     Dates: start: 20071203, end: 20080122
  3. DIPIPERON [Suspect]
     Indication: PSYCHOTIC DISORDER
     Dosage: 40 MILLIGRAM DAILY;
     Route: 048
     Dates: start: 20071203, end: 20080122
  4. FOLIO FORTE [Concomitant]
     Indication: PROPHYLAXIS OF NEURAL TUBE DEFECT
     Dosage: .8 MILLIGRAM DAILY;
     Route: 048

REACTIONS (2)
  - Pre-eclampsia [Recovered/Resolved]
  - Thrombocytopenia [Unknown]
